FAERS Safety Report 6069419-X (Version None)
Quarter: 2009Q1

REPORT INFORMATION
  Report Type: 
  Country: None (occurrence: None)
  Receive Date: 20090206
  Receipt Date: 20090206
  Transmission Date: 20090719
  Serious: Yes (Hospitalization, Other)
  Sender: FDA-Public Use
  Company Number: US-PFIZER INC-2008095237

PATIENT
  Sex: Female
  Weight: 100.9 kg

DRUGS (8)
  1. LYRICA [Suspect]
     Indication: FIBROMYALGIA
     Dates: start: 20080801
  2. CYMBALTA [Concomitant]
  3. AMLODIPINE BESYLATE AND BENAZEPRIL HCL [Concomitant]
  4. HYDROCHLOROTHIAZIDE [Concomitant]
  5. METOPROLOL TARTRATE [Concomitant]
  6. FUROSEMIDE [Concomitant]
  7. AMBIEN [Concomitant]
  8. VICODIN [Concomitant]

REACTIONS (11)
  - ASTHENIA [None]
  - BALANCE DISORDER [None]
  - BLOOD CALCIUM DECREASED [None]
  - COORDINATION ABNORMAL [None]
  - FALL [None]
  - GLUCOSE TOLERANCE IMPAIRED [None]
  - MALAISE [None]
  - NAUSEA [None]
  - SPEECH DISORDER [None]
  - TREMOR [None]
  - VITAMIN D DEFICIENCY [None]
